FAERS Safety Report 5071261-3 (Version None)
Quarter: 2006Q3

REPORT INFORMATION
  Report Type: 
  Country: None (occurrence: None)
  Receive Date: 20060804
  Receipt Date: 20060426
  Transmission Date: 20061208
  Serious: Yes (Other)
  Sender: FDA-Public Use
  Company Number: AU-AMGEN-US177668

PATIENT
  Sex: Female

DRUGS (3)
  1. KINERET [Suspect]
     Indication: RHEUMATOID ARTHRITIS
     Route: 058
     Dates: start: 19980101, end: 20060401
  2. METHOTREXATE [Concomitant]
     Dates: start: 19980101, end: 20060101
  3. PREDNISONE TAB [Concomitant]

REACTIONS (1)
  - GLIOBLASTOMA [None]
